FAERS Safety Report 4485597-8 (Version None)
Quarter: 2004Q4

REPORT INFORMATION
  Report Type: 
  Country: None (occurrence: None)
  Receive Date: 20041026
  Receipt Date: 20040928
  Transmission Date: 20050328
  Serious: Yes (Hospitalization, Other)
  Sender: FDA-Public Use
  Company Number: DE-JNJFOC-20041000204

PATIENT
  Sex: Male

DRUGS (5)
  1. REMINYL [Suspect]
     Route: 049
  2. PRAVASIN [Concomitant]
     Route: 049
  3. ENALAPRIL MALEATE [Concomitant]
     Indication: HYPERTENSION
     Route: 049
  4. FORADIL [Concomitant]
     Route: 055
  5. MIFLONIDE [Concomitant]
     Route: 055

REACTIONS (5)
  - AGGRESSION [None]
  - CONFUSIONAL STATE [None]
  - DIZZINESS [None]
  - NERVOUS SYSTEM DISORDER [None]
  - RESTLESSNESS [None]
